FAERS Safety Report 9089767 (Version 1)
Quarter: 2013Q1

REPORT INFORMATION
  Report Type: Report from Study
  Country: US (occurrence: US)
  Receive Date: 20130201
  Receipt Date: 20130201
  Transmission Date: 20140127
  Serious: No
  Sender: FDA-Public Use
  Company Number: US-ABBOTT-12P-163-1025019-00

PATIENT
  Sex: Male
  Weight: 95.34 kg

DRUGS (8)
  1. HUMIRA [Suspect]
     Indication: RHEUMATOID ARTHRITIS
     Dates: start: 20121108
  2. METHOTREXATE [Suspect]
     Indication: RHEUMATOID ARTHRITIS
     Dates: end: 201212
  3. FOLIC ACID [Suspect]
     Indication: RHEUMATOID ARTHRITIS
     Dates: end: 201212
  4. ATELVIA [Concomitant]
     Indication: OSTEOPOROSIS
  5. ASPIRIN [Concomitant]
     Indication: CARDIOVASCULAR EVENT PROPHYLAXIS
  6. EFFIENT [Concomitant]
     Indication: THROMBOSIS PROPHYLAXIS
  7. LISINOPRIL [Concomitant]
     Indication: HYPERTENSION
  8. PREDNISONE [Concomitant]
     Indication: RHEUMATOID ARTHRITIS

REACTIONS (1)
  - Hepatic enzyme increased [Not Recovered/Not Resolved]
